FAERS Safety Report 14965411 (Version 3)
Quarter: 2018Q2

REPORT INFORMATION
  Report Type: Spontaneous
  Country: ES (occurrence: ES)
  Receive Date: 20180601
  Receipt Date: 20180612
  Transmission Date: 20180711
  Serious: Yes (Hospitalization, Other)
  Sender: FDA-Public Use
  Company Number: ES-ALLERGAN-1828676US

PATIENT
  Age: 64 Year
  Sex: Male

DRUGS (3)
  1. DALBAVANCIN HCL UNK [Suspect]
     Active Substance: DALBAVANCIN HYDROCHLORIDE
     Dosage: 1000 MG, UNK
     Route: 065
     Dates: start: 20171023, end: 20171023
  2. DEFLAZACORT [Concomitant]
     Active Substance: DEFLAZACORT
     Indication: RHEUMATOID ARTHRITIS
     Route: 065
  3. DALBAVANCIN HCL UNK [Suspect]
     Active Substance: DALBAVANCIN HYDROCHLORIDE
     Indication: DIABETIC FOOT INFECTION
     Dosage: 1000 MG, UNK
     Route: 065
     Dates: start: 20171031, end: 20171031

REACTIONS (9)
  - Distributive shock [Unknown]
  - Pulmonary oedema [Unknown]
  - Dyspnoea at rest [Unknown]
  - Vomiting [Unknown]
  - Cardiogenic shock [Unknown]
  - General physical health deterioration [Unknown]
  - Ventricular dysfunction [Unknown]
  - Hypotension [Unknown]
  - Diarrhoea [Unknown]

NARRATIVE: CASE EVENT DATE: 20171031
